FAERS Safety Report 15836928 (Version 2)
Quarter: 2019Q1

REPORT INFORMATION
  Report Type: Report from Study
  Country: KR (occurrence: KR)
  Receive Date: 20190117
  Receipt Date: 20190222
  Transmission Date: 20190417
  Serious: Yes (Hospitalization)
  Sender: FDA-Public Use
  Company Number: KR-ROCHE-2228991

PATIENT
  Age: 65 Year
  Sex: Male
  Weight: 49.5 kg

DRUGS (47)
  1. SMOFKABIVEN CENTRAL [Concomitant]
     Indication: HYPOPHAGIA
     Route: 042
     Dates: start: 20181119, end: 20181120
  2. CHLORPHENIRAMINE. [Concomitant]
     Active Substance: CHLORPHENIRAMINE
     Indication: PROPHYLAXIS
     Dosage: PROPHYLACTIC FOR PYREXIAL REACTIONS DURING TRANSFUSION
     Route: 042
     Dates: start: 20181126, end: 20181126
  3. ALBUMIN [Concomitant]
     Active Substance: ALBUMIN HUMAN
     Indication: HYPOALBUMINAEMIA
     Route: 042
     Dates: start: 20181128, end: 20181128
  4. ERDOS [Concomitant]
     Active Substance: ERDOSTEINE
     Route: 048
     Dates: start: 20181208, end: 20181211
  5. DESOWEN [Concomitant]
     Active Substance: DESONIDE
     Indication: RASH
     Route: 061
     Dates: start: 20181212
  6. ULCERMIN SUSPENSION [Concomitant]
     Indication: PROPHYLAXIS AGAINST GASTROINTESTINAL ULCER
     Route: 048
     Dates: start: 20181216, end: 20181219
  7. UROKINASE [Concomitant]
     Active Substance: UROKINASE
     Route: 058
     Dates: start: 20181221, end: 20181221
  8. DENOGAN [Concomitant]
     Active Substance: PROPACETAMOL HYDROCHLORIDE
     Indication: PYREXIA
     Route: 042
     Dates: start: 20181226, end: 20181226
  9. AIRTAL [Concomitant]
     Active Substance: ACECLOFENAC
     Indication: PYREXIA
     Route: 048
     Dates: start: 20181227
  10. HEPARIN [Concomitant]
     Active Substance: HEPARIN SODIUM
     Route: 042
     Dates: start: 20181231, end: 20181231
  11. SMOFLIPID [Concomitant]
     Active Substance: FISH OIL\MEDIUM-CHAIN TRIGLYCERIDES\OLIVE OIL\SOYBEAN OIL
     Indication: HYPOPHAGIA
     Route: 042
     Dates: start: 20181108, end: 20181109
  12. SMOFLIPID [Concomitant]
     Active Substance: FISH OIL\MEDIUM-CHAIN TRIGLYCERIDES\OLIVE OIL\SOYBEAN OIL
     Route: 042
     Dates: start: 20181117, end: 20181117
  13. LACIDOFIL [Concomitant]
     Active Substance: LACTOBACILLUS ACIDOPHILUS\LACTOBACILLUS RHAMNOSUS
     Indication: PROPHYLAXIS AGAINST DIARRHOEA
     Dosage: PROPHYLACTIC FOR ANTIBIOTIC-ASSOCIATED DIARRHEA
     Route: 048
     Dates: start: 20181116, end: 20181219
  14. SUSPEN ER [Concomitant]
     Indication: PYREXIA
     Route: 048
     Dates: start: 20181127, end: 20181127
  15. SUSPEN ER [Concomitant]
     Route: 048
     Dates: start: 20181220, end: 20181220
  16. SOLONDO [Concomitant]
     Active Substance: PREDNISOLONE
     Indication: RASH
     Route: 048
     Dates: start: 20181216, end: 20181219
  17. LIDOCAINE. [Concomitant]
     Active Substance: LIDOCAINE
     Route: 058
     Dates: start: 20181214, end: 20181214
  18. TRIAXONE [Concomitant]
     Indication: PYREXIA
     Route: 042
     Dates: start: 20181125, end: 20181125
  19. TYLENOL [Concomitant]
     Active Substance: ACETAMINOPHEN
     Indication: PYREXIA
     Route: 048
     Dates: start: 20181127, end: 20181127
  20. BIFEN CATAPLASMA [Concomitant]
     Indication: ARTHRALGIA
     Route: 062
     Dates: start: 20181208, end: 20181209
  21. MUTERAN [Concomitant]
     Active Substance: ACETYLCYSTEINE
     Indication: COUGH
     Route: 048
     Dates: start: 20181208
  22. UROKINASE [Concomitant]
     Active Substance: UROKINASE
     Route: 042
     Dates: start: 20181230, end: 20181230
  23. TYLENOL [Concomitant]
     Active Substance: ACETAMINOPHEN
     Route: 048
     Dates: start: 20181222, end: 20181227
  24. DISOLRIN [Concomitant]
     Indication: RASH
     Route: 042
     Dates: start: 20181214, end: 20181216
  25. BEPANTHEN (CHLORHEXIDIN/DEXPANTHENOL) [Concomitant]
     Indication: RASH
     Route: 061
     Dates: start: 20181215
  26. TAZOPERAN [Concomitant]
     Indication: PYREXIA
     Route: 042
     Dates: start: 20181222, end: 20181231
  27. LASIX [Concomitant]
     Active Substance: FUROSEMIDE
     Route: 042
     Dates: start: 20181229, end: 20181229
  28. LASIX [Concomitant]
     Active Substance: FUROSEMIDE
     Route: 042
     Dates: start: 20181230, end: 20181230
  29. LASIX [Concomitant]
     Active Substance: FUROSEMIDE
     Route: 042
     Dates: start: 20181231, end: 20181231
  30. ATEZOLIZUMAB. [Suspect]
     Active Substance: ATEZOLIZUMAB
     Indication: NON-SMALL CELL LUNG CANCER
     Dosage: MOST RECENT DOSE OF ATEZOLIZUMAB AT 15:00?DATE OF MOST RECENT DOSE OF ATEZOLIZUMAB PRIOR TO SERIOUS
     Route: 042
     Dates: start: 20181130
  31. GANAKHAN [Concomitant]
     Indication: HYPOPHAGIA
     Route: 048
     Dates: start: 20181107, end: 20181115
  32. FENTANYL. [Concomitant]
     Active Substance: FENTANYL
     Indication: GASTROSTOMY
     Dosage: PRG INSERTION
     Route: 042
     Dates: start: 20181119, end: 20181119
  33. LIDOCAINE. [Concomitant]
     Active Substance: LIDOCAINE
     Indication: GASTROSTOMY
     Dosage: LOCAL ANESTHESIA FOR PRG INSERTION
     Route: 058
     Dates: start: 20181119, end: 20181119
  34. URANTAC [Concomitant]
     Indication: PROPHYLAXIS AGAINST GASTROINTESTINAL ULCER
     Route: 048
     Dates: start: 20181107, end: 20181213
  35. VITAMIN K1 [Concomitant]
     Active Substance: PHYTONADIONE
     Dosage: VITAMIN SUPPLY
     Route: 058
     Dates: start: 20181113, end: 20181113
  36. SUSPEN ER [Concomitant]
     Route: 065
     Dates: start: 20190201, end: 20190201
  37. BEAROBAN [Concomitant]
     Indication: RASH
     Route: 061
     Dates: start: 20181211, end: 20181213
  38. CHLORPHENIRAMINE. [Concomitant]
     Active Substance: CHLORPHENIRAMINE
     Route: 042
     Dates: start: 20181226, end: 20181226
  39. ERDOS [Concomitant]
     Active Substance: ERDOSTEINE
     Indication: COUGH
     Route: 048
     Dates: start: 20181209, end: 20181209
  40. CETAMADOL [Concomitant]
     Indication: TUMOUR PAIN
     Route: 048
     Dates: start: 20181202
  41. HARMONILAN [Concomitant]
     Indication: HYPOPHAGIA
     Route: 048
     Dates: start: 20181202, end: 20181207
  42. CEFAZOLINE [Concomitant]
     Active Substance: CEFAZOLIN SODIUM
     Indication: PYREXIA
     Route: 042
     Dates: start: 20181108, end: 20181112
  43. SMECTA [Concomitant]
     Active Substance: MONTMORILLONITE
     Route: 048
     Dates: start: 20181210
  44. TRIAXONE [Concomitant]
     Route: 042
     Dates: start: 20181221, end: 20181222
  45. TAZOPERAN [Concomitant]
     Indication: PNEUMONIA ASPIRATION
     Route: 042
     Dates: start: 20190110, end: 20190113
  46. PLACEBO [Suspect]
     Active Substance: UNSPECIFIED INGREDIENT
     Indication: NON-SMALL CELL LUNG CANCER
     Dosage: MOST RECENT DOSE OF MTIG7192A  PRIOR TO SAE ONSET AT 18:25?DATE OF MOST RECENT DOSE OF BLINDED MTIG7
     Route: 042
     Dates: start: 20181130
  47. SMECTA [Concomitant]
     Active Substance: MONTMORILLONITE
     Indication: PROPHYLAXIS
     Dosage: PROPHYLACTIC FOR GASTRIC DISCOMFORT
     Route: 048
     Dates: start: 20181115, end: 20181115

REACTIONS (2)
  - Pyrexia [Recovered/Resolved]
  - Pneumonia aspiration [Recovered/Resolved]

NARRATIVE: CASE EVENT DATE: 20181208
